FAERS Safety Report 4569571-9 (Version None)
Quarter: 2005Q1

REPORT INFORMATION
  Report Type: 
  Country: None (occurrence: None)
  Receive Date: 20050201
  Receipt Date: 20050117
  Transmission Date: 20050727
  Serious: Yes (Other)
  Sender: FDA-Public Use
  Company Number: 2004-06808

PATIENT
  Age: 36 Year
  Sex: Female

DRUGS (6)
  1. VIREAD [Suspect]
     Indication: HIV INFECTION
     Dosage: 300 MG, 1 IN 1 D, ORAL
     Route: 048
     Dates: start: 20030908
  2. LAMIVUDINE (LAMIVUDINE) [Concomitant]
  3. NELFINAVIR (NELFINAVIR) [Concomitant]
  4. NEVIRAPINE [Concomitant]
  5. ZIDOVUDINE [Concomitant]
  6. LOPINAVIR W/RITONAVIR (KALETRA) [Concomitant]

REACTIONS (3)
  - CAESAREAN SECTION [None]
  - COMPLICATIONS OF MATERNAL EXPOSURE TO THERAPEUTIC DRUGS [None]
  - PREMATURE RUPTURE OF MEMBRANES [None]
